FAERS Safety Report 5597818-9 (Version None)
Quarter: 2007Q4

REPORT INFORMATION
  Report Type: 
  Country: None (occurrence: None)
  Receive Date: 20071221
  Receipt Date: 20070723
  Transmission Date: 20080405
  Serious: No
  Sender: FDA-Public Use
  Company Number: US200707005287

PATIENT
  Sex: Female

DRUGS (1)
  1. HUMALOG PEN [Suspect]
     Indication: DIABETES MELLITUS

REACTIONS (3)
  - BLOOD GLUCOSE INCREASED [None]
  - GLAUCOMA [None]
  - VISUAL ACUITY REDUCED [None]
